FAERS Safety Report 8844467 (Version 1)
Quarter: 2012Q4

REPORT INFORMATION
  Report Type: Spontaneous
  Country: US (occurrence: None)
  Receive Date: 20121016
  Receipt Date: 20121016
  Transmission Date: 20130627
  Serious: Yes (Hospitalization)
  Sender: FDA-Public Use
  Company Number: None

PATIENT
  Age: 68 Year
  Sex: Male
  Weight: 172.7 kg

DRUGS (12)
  1. ASA [Suspect]
     Indication: CORONARY ARTERY DISEASE
     Dosage: chronic
     Route: 048
  2. PREDNISONE [Suspect]
     Dosage: recent (tapered dosing)
     Route: 048
  3. PLAVIX [Suspect]
  4. IMODIUM [Concomitant]
  5. PRAVACHOL [Concomitant]
  6. NORVASC [Concomitant]
  7. HYDRALAZINE [Concomitant]
  8. HUMULIN [Concomitant]
  9. IMDUR [Concomitant]
  10. LEVAQUIN [Concomitant]
  11. FLAGYL [Concomitant]
  12. O2 2L NC [Concomitant]

REACTIONS (4)
  - Duodenal ulcer [None]
  - Renal failure acute [None]
  - Dehydration [None]
  - Tubulointerstitial nephritis [None]
